FAERS Safety Report 9945198 (Version 1)
Quarter: 2014Q1

REPORT INFORMATION
  Report Type: Report from Study
  Country: US (occurrence: US)
  Receive Date: 20140303
  Receipt Date: 20140303
  Transmission Date: 20141002
  Serious: No
  Sender: FDA-Public Use
  Company Number: US-ABBVIE-13P-163-1053667-00

PATIENT
  Age: 27 Year
  Sex: Female

DRUGS (5)
  1. HUMIRA [Suspect]
     Indication: PSORIASIS
  2. LITHIUM [Concomitant]
     Indication: BIPOLAR DISORDER
     Dosage: 300MG 2 IN THE AM, 2 IN THE PM
  3. SERTRALINE [Concomitant]
     Indication: BIPOLAR DISORDER
     Dosage: 100 MG X 2 IN THE AM
  4. HYDROXYZINE [Concomitant]
     Indication: ANXIETY
     Dosage: 50 MG X 1 IN THE AM, 1 IN THE PM
  5. BUSPAR [Concomitant]
     Indication: ANXIETY

REACTIONS (2)
  - Tremor [Not Recovered/Not Resolved]
  - Nervousness [Not Recovered/Not Resolved]
